FAERS Safety Report 7542248-3 (Version None)
Quarter: 2011Q2

REPORT INFORMATION
  Report Type: 
  Country: None (occurrence: None)
  Receive Date: 20110613
  Receipt Date: 20110607
  Transmission Date: 20111010
  Serious: Yes (Hospitalization)
  Sender: FDA-Public Use
  Company Number: GB-PFIZER INC-2011124763

PATIENT
  Age: 42 Year
  Sex: Female

DRUGS (4)
  1. SERTRALINE HYDROCHLORIDE [Suspect]
     Dosage: 100 MG, 1X/DAY
     Route: 048
  2. DICLOFENAC SODIUM [Suspect]
     Dosage: 75 MG, 2X/DAY
     Route: 048
     Dates: end: 20110524
  3. PARACETAMOL [Concomitant]
  4. ZOPICLONE [Concomitant]

REACTIONS (6)
  - NAUSEA [None]
  - PEPTIC ULCER [None]
  - GASTRIC ULCER [None]
  - ABDOMINAL PAIN [None]
  - VOMITING [None]
  - DIARRHOEA [None]
